FAERS Safety Report 4842474-8 (Version None)
Quarter: 2005Q4

REPORT INFORMATION
  Report Type: 
  Country: None (occurrence: None)
  Receive Date: 20051129
  Receipt Date: 20051110
  Transmission Date: 20060501
  Serious: Yes (Congenital Anomaly, Other)
  Sender: FDA-Public Use
  Company Number: US200511001553

PATIENT
  Sex: Female

DRUGS (2)
  1. INSULIN [Suspect]
     Dosage: TRANSPLACENTAL
     Route: 064
  2. NOVOLIN 70/30 (INSULIN HUMAN, INSULIN HUMAN INJECTON, ISOPHANE) [Concomitant]

REACTIONS (8)
  - ADOPTION [None]
  - BONE DISORDER [None]
  - CONGENITAL ANOMALY [None]
  - DRUG EXPOSURE DURING PREGNANCY [None]
  - FEEDING DISORDER NEONATAL [None]
  - HYPERPLASIA [None]
  - MATERNAL CONDITION AFFECTING FOETUS [None]
  - PREMATURE BABY [None]
